FAERS Safety Report 16033349 (Version 1)
Quarter: 2019Q1

REPORT INFORMATION
  Report Type: Spontaneous
  Country: US (occurrence: US)
  Receive Date: 20190305
  Receipt Date: 20190305
  Transmission Date: 20190418
  Serious: No
  Sender: FDA-Public Use
  Company Number: US-AMGEN-USASP2019033567

PATIENT
  Age: 69 Year
  Sex: Female

DRUGS (9)
  1. ENBREL [Suspect]
     Active Substance: ETANERCEPT
     Indication: PRODUCT USED FOR UNKNOWN INDICATION
     Dosage: 50 MG, 2 TIMES/WK
     Route: 058
  2. ALPRAZOLAM. [Concomitant]
     Active Substance: ALPRAZOLAM
     Dosage: 0.25 MG, UNK
  3. IRBESARTAN. [Concomitant]
     Active Substance: IRBESARTAN
     Dosage: 150 MG, UNK
  4. SINGULAIR [Concomitant]
     Active Substance: MONTELUKAST SODIUM
     Dosage: UNK
  5. CARISOPRODOL. [Concomitant]
     Active Substance: CARISOPRODOL
     Dosage: 350 MG, UNK
  6. CHLORDIAZEPOXIDE HCL [Concomitant]
     Active Substance: CHLORDIAZEPOXIDE HYDROCHLORIDE
     Dosage: UNK
  7. PREDNISONE. [Concomitant]
     Active Substance: PREDNISONE
     Dosage: 20 MG, UNK
  8. VENTOLIN [Concomitant]
     Active Substance: ALBUTEROL SULFATE
     Dosage: 90 MUG, UNK
  9. ILEVRO [Concomitant]
     Active Substance: NEPAFENAC
     Dosage: UNK

REACTIONS (1)
  - Surgery [Not Recovered/Not Resolved]
